FAERS Safety Report 7296875-1 (Version None)
Quarter: 2011Q1

REPORT INFORMATION
  Report Type: 
  Country: None (occurrence: None)
  Receive Date: 20110216
  Receipt Date: 20110215
  Transmission Date: 20110831
  Serious: Yes (Death)
  Sender: FDA-Public Use
  Company Number: PHHO2011IT02891

PATIENT
  Sex: Male
  Weight: 95 kg

DRUGS (9)
  1. ACCURETIC [Concomitant]
  2. BLINDED NO TREATMENT RECEIVED [Suspect]
     Dosage: UNK
  3. ENALAPRIL [Suspect]
     Indication: CARDIAC FAILURE
     Dosage: UNK
     Dates: start: 20110126
  4. DILADEL [Concomitant]
  5. ENALAPRIL MALEATE [Suspect]
     Dosage: UNK
  6. BLINDED ALISKIREN [Suspect]
     Dosage: UNK
  7. NORVASC [Concomitant]
  8. ATORVASTATIN [Concomitant]
  9. ASPIRIN [Concomitant]

REACTIONS (1)
  - DEATH [None]
